FAERS Safety Report 18317794 (Version 1)
Quarter: 2020Q3

REPORT INFORMATION
  Report Type: Spontaneous
  Country: US (occurrence: US)
  Receive Date: 20200928
  Receipt Date: 20200928
  Transmission Date: 20201103
  Serious: No
  Sender: FDA-Public Use
  Company Number: US-ALLERGAN-1948479US

PATIENT
  Age: 53 Year
  Sex: Male
  Weight: 97.5 kg

DRUGS (5)
  1. ESCITALOPRAM OXALATE ? BP [Suspect]
     Active Substance: ESCITALOPRAM OXALATE
     Indication: PRODUCT USED FOR UNKNOWN INDICATION
     Dosage: UNK
  2. VIVITROL [Suspect]
     Active Substance: NALTREXONE
     Dosage: 380 MG, Q MONTH
     Route: 030
     Dates: start: 20190906, end: 20190906
  3. VIVITROL [Suspect]
     Active Substance: NALTREXONE
     Dosage: 380 UNK, Q MONTH
     Route: 030
     Dates: start: 201902, end: 201902
  4. VIVITROL [Suspect]
     Active Substance: NALTREXONE
     Indication: ALCOHOLISM
     Dosage: 380 MG, Q MONTH
     Route: 030
     Dates: start: 20191019, end: 20191019
  5. VIVITROL [Suspect]
     Active Substance: NALTREXONE
     Dosage: 380 UNK, Q MONTH
     Route: 030
     Dates: start: 20190322, end: 20190322

REACTIONS (16)
  - Injection site reaction [Recovered/Resolved]
  - Hypersensitivity [Recovered/Resolved]
  - Injection site swelling [Not Recovered/Not Resolved]
  - Injection site pain [Recovering/Resolving]
  - Injection site mass [Recovering/Resolving]
  - Dry mouth [Not Recovered/Not Resolved]
  - Pain [Not Recovered/Not Resolved]
  - Pain in extremity [Recovered/Resolved]
  - Abnormal dreams [Recovered/Resolved]
  - Fatigue [Not Recovered/Not Resolved]
  - Arthralgia [Not Recovered/Not Resolved]
  - Stress [Recovered/Resolved]
  - Alcoholism [Recovered/Resolved]
  - Hypersomnia [Recovered/Resolved]
  - Needle issue [Recovered/Resolved]
  - Somnolence [Recovered/Resolved]

NARRATIVE: CASE EVENT DATE: 2019
